FAERS Safety Report 15901141 (Version 2)
Quarter: 2020Q2

REPORT INFORMATION
  Report Type: Spontaneous
  Country: CA (occurrence: CA)
  Receive Date: 20190201
  Receipt Date: 20200407
  Transmission Date: 20200713
  Serious: Yes (Other)
  Sender: FDA-Public Use
  Company Number: CA-ALLERGAN-1904536US

PATIENT
  Sex: Female

DRUGS (1)
  1. RISEDRONATE SODIUM UNK [Suspect]
     Active Substance: RISEDRONATE SODIUM
     Indication: OSTEOPOROSIS
     Dosage: 35 MG, ONCE PER WEEK
     Route: 065

REACTIONS (2)
  - Spondylolisthesis [Recovering/Resolving]
  - Lumbar vertebral fracture [Recovering/Resolving]
